FAERS Safety Report 9401449 (Version 1)
Quarter: 2013Q3

REPORT INFORMATION
  Report Type: Spontaneous
  Country: US (occurrence: US)
  Receive Date: 20130716
  Receipt Date: 20130716
  Transmission Date: 20140515
  Serious: No
  Sender: FDA-Public Use
  Company Number: US-009507513-1307USA006059

PATIENT
  Sex: 0

DRUGS (3)
  1. MIRALAX [Suspect]
     Indication: PRODUCT USED FOR UNKNOWN INDICATION
     Dosage: UNK, QD
     Route: 048
     Dates: start: 20130622
  2. MIRALAX [Suspect]
     Dosage: 34 G, ONCE
     Route: 048
     Dates: start: 20130627
  3. MIRALAX [Suspect]
     Dosage: 1 DF, ONCE
     Route: 048
     Dates: start: 20130628

REACTIONS (2)
  - Overdose [Unknown]
  - Drug ineffective [Unknown]
